FAERS Safety Report 9398386 (Version 1)
Quarter: 2013Q3

REPORT INFORMATION
  Report Type: Spontaneous
  Country: US (occurrence: US)
  Receive Date: 20130712
  Receipt Date: 20130712
  Transmission Date: 20140515
  Serious: No
  Sender: FDA-Public Use
  Company Number: US-GLAXOSMITHKLINE-A1013791A

PATIENT
  Age: 79 Year
  Sex: Male

DRUGS (9)
  1. FLOVENT [Suspect]
     Indication: UPPER RESPIRATORY TRACT INFECTION
     Dosage: 1PUFF TWICE PER DAY
     Route: 055
     Dates: start: 20130130
  2. MONTELUKAST [Concomitant]
  3. FLUTICASONE NASAL [Concomitant]
  4. OMEPRAZOLE [Concomitant]
  5. CARVEDILOL [Concomitant]
  6. VERAPAMIL [Concomitant]
  7. SIMVASTATIN [Concomitant]
  8. VITAMIN D [Concomitant]
  9. LOSARTAN [Concomitant]

REACTIONS (1)
  - Dysphonia [Not Recovered/Not Resolved]
